FAERS Safety Report 14208006 (Version 2)
Quarter: 2018Q1

REPORT INFORMATION
  Report Type: Spontaneous
  Country: PT (occurrence: PT)
  Receive Date: 20171121
  Receipt Date: 20180109
  Transmission Date: 20180508
  Serious: Yes (Other)
  Sender: FDA-Public Use
  Company Number: PT-AUROBINDO-AUR-APL-2017-43719

PATIENT
  Age: 49 Year
  Sex: Male

DRUGS (1)
  1. SIMVASTATIN. [Suspect]
     Active Substance: SIMVASTATIN
     Indication: DYSLIPIDAEMIA
     Route: 065

REACTIONS (11)
  - Face oedema [Unknown]
  - Renal injury [Unknown]
  - Oedema peripheral [Unknown]
  - Muscle spasms [Unknown]
  - Snoring [Unknown]
  - Hypothyroidism [Unknown]
  - Increased appetite [Unknown]
  - Rhabdomyolysis [Unknown]
  - Weight increased [Unknown]
  - Dysphonia [Unknown]
  - Myalgia [Unknown]
